FAERS Safety Report 22125046 (Version 1)
Quarter: 2023Q1

REPORT INFORMATION
  Report Type: Spontaneous
  Country: CH (occurrence: CH)
  Receive Date: 20230322
  Receipt Date: 20230322
  Transmission Date: 20230417
  Serious: Yes (Other)
  Sender: FDA-Public Use
  Company Number: CH-NOVEN PHARMACEUTICALS, INC.-2023-NOV-CH000248

PATIENT
  Age: 28 Year
  Sex: Female

DRUGS (1)
  1. METHYLPHENIDATE [Suspect]
     Active Substance: METHYLPHENIDATE
     Indication: Product used for unknown indication
     Dosage: 6 MG, UNK
     Route: 013

REACTIONS (3)
  - Necrosis [Unknown]
  - Drug abuse [Unknown]
  - Accidental exposure to product [Unknown]
